FAERS Safety Report 5990955-6 (Version None)
Quarter: 2008Q4

REPORT INFORMATION
  Report Type: 
  Country: None (occurrence: None)
  Receive Date: 20081211
  Receipt Date: 20080422
  Transmission Date: 20090506
  Serious: No
  Sender: FDA-Public Use
  Company Number: US-AMGEN-KDL275532

PATIENT
  Sex: Female

DRUGS (26)
  1. ENBREL [Suspect]
     Indication: RHEUMATOID ARTHRITIS
     Dates: start: 20071201
  2. ENBREL [Suspect]
     Indication: ANKYLOSING SPONDYLITIS
  3. CYMBALTA [Concomitant]
  4. LEVOTHYROXINE SODIUM [Concomitant]
  5. FOLIC ACID [Concomitant]
  6. ZANAFLEX [Concomitant]
  7. REQUIP [Concomitant]
  8. PILOCARPINE [Concomitant]
  9. RESTORIL [Concomitant]
  10. NEXIUM [Concomitant]
  11. VIVELLE [Concomitant]
  12. LYRICA [Concomitant]
  13. LOVAZA [Concomitant]
  14. ASPIRIN [Concomitant]
  15. METHOTREXATE [Concomitant]
  16. LEUCOVORIN CALCIUM [Concomitant]
     Route: 048
  17. HYDROCODONE BITARTRATE [Concomitant]
  18. ATARAX [Concomitant]
  19. ZYRTEC [Concomitant]
  20. CITRACAL [Concomitant]
  21. CENTRUM SILVER [Concomitant]
  22. VITAMIN B6 [Concomitant]
  23. VITAMIN B-12 [Concomitant]
  24. SENOKOT [Concomitant]
  25. DULCOLAX [Concomitant]
  26. ASCORBIC ACID [Concomitant]

REACTIONS (4)
  - DRUG EFFECT DECREASED [None]
  - INJECTION SITE HAEMATOMA [None]
  - INJECTION SITE HAEMORRHAGE [None]
  - PNEUMONIA [None]
